FAERS Safety Report 9194268 (Version 2)
Quarter: 2013Q2

REPORT INFORMATION
  Report Type: Spontaneous
  Country: US (occurrence: US)
  Receive Date: 20130327
  Receipt Date: 20130404
  Transmission Date: 20140414
  Serious: Yes (Hospitalization)
  Sender: FDA-Public Use
  Company Number: US-BAXTER-2013BAX010626

PATIENT
  Age: 49 Year
  Sex: Male

DRUGS (1)
  1. DIANEAL LOW CALCIUM [Suspect]
     Indication: PERITONEAL DIALYSIS
     Route: 033

REACTIONS (8)
  - Vascular stenosis [Unknown]
  - Condition aggravated [Recovering/Resolving]
  - Cerebrovascular accident [Recovering/Resolving]
  - Convulsion [Recovering/Resolving]
  - Diabetes mellitus [Recovering/Resolving]
  - Blood glucose increased [Recovered/Resolved]
  - Dyspnoea [Unknown]
  - Hypertension [Recovering/Resolving]
